FAERS Safety Report 12650469 (Version 1)
Quarter: 2016Q3

REPORT INFORMATION
  Report Type: Spontaneous
  Country: IT (occurrence: IT)
  Receive Date: 20160815
  Receipt Date: 20160815
  Transmission Date: 20161109
  Serious: Yes (Disabling)
  Sender: FDA-Public Use
  Company Number: IT-009507513-1608ITA003889

PATIENT
  Age: 85 Year
  Sex: Female

DRUGS (2)
  1. DELTACORTENE [Suspect]
     Active Substance: PREDNISONE
     Indication: OSTEOARTHRITIS
     Dosage: 5 MG, DAILY
     Route: 048
     Dates: start: 19960101
  2. FOSAVANCE [Suspect]
     Active Substance: ALENDRONATE SODIUM\CHOLECALCIFEROL
     Indication: OSTEOPOROSIS
     Dosage: 70 MG, WEEKLY
     Route: 048
     Dates: start: 20130101, end: 20160501

REACTIONS (5)
  - Bone fistula [Unknown]
  - Pain [Unknown]
  - Oedema mucosal [Unknown]
  - Purulent discharge [Unknown]
  - Oral mucosal erythema [Unknown]

NARRATIVE: CASE EVENT DATE: 20160803
